FAERS Safety Report 5913724-1 (Version None)
Quarter: 2008Q4

REPORT INFORMATION
  Report Type: 
  Country: None (occurrence: None)
  Receive Date: 20081007
  Receipt Date: 20080924
  Transmission Date: 20090506
  Serious: No
  Sender: FDA-Public Use
  Company Number: 004536

PATIENT
  Age: 60 Year
  Sex: Male

DRUGS (8)
  1. PLETAL [Suspect]
     Indication: LACUNAR INFARCTION
     Dosage: 100 MG, BID ORAL
     Route: 048
     Dates: start: 20040610
  2. BLOPRESS (CANDESARTAN CILEXETIL) TABLET [Concomitant]
  3. AMARYL [Concomitant]
  4. BASEN (VOGLIBOSE) TABLET [Concomitant]
  5. GLORIAMIN (SODIUM AZULENE SULFONATE_L-GLUTAMINE) [Concomitant]
  6. ULCERLMIN (SUCRALFATE) UNKNOWN [Concomitant]
  7. BERIZYM (PANCREATIC ENZYME COMBINED DRUG) UNKNOWN [Concomitant]
  8. ACTOS [Concomitant]

REACTIONS (2)
  - CORONARY ARTERY STENOSIS [None]
  - ELECTROCARDIOGRAM ST SEGMENT DEPRESSION [None]
